FAERS Safety Report 5401834-7 (Version None)
Quarter: 2007Q3

REPORT INFORMATION
  Report Type: 
  Country: None (occurrence: None)
  Receive Date: 20070726
  Receipt Date: 20070717
  Transmission Date: 20080115
  Serious: Yes (Other)
  Sender: FDA-Public Use
  Company Number: 2007SP014331

PATIENT
  Age: 52 Year
  Sex: Female
  Weight: 71 kg

DRUGS (2)
  1. REBETOL [Suspect]
     Indication: HEPATITIS C
     Dosage: 1000 MG;
     Dates: start: 20050712
  2. PEGASYS [Suspect]
     Indication: HEPATITIS C
     Dosage: 180 MCG;
     Dates: start: 20050712

REACTIONS (1)
  - MALIGNANT MELANOMA [None]
